FAERS Safety Report 9353646 (Version 1)
Quarter: 2013Q2

REPORT INFORMATION
  Report Type: Spontaneous
  Country: US (occurrence: None)
  Receive Date: 20130617
  Receipt Date: 20130617
  Transmission Date: 20140414
  Serious: No
  Sender: FDA-Public Use
  Company Number: None

PATIENT
  Age: 62 Year
  Sex: Female

DRUGS (1)
  1. PREDNISOLONE ACETATE [Suspect]
     Route: 047

REACTIONS (6)
  - Vitreous floaters [None]
  - Vision blurred [None]
  - Uveitis [None]
  - Discomfort [None]
  - Product substitution issue [None]
  - Disease recurrence [None]
